FAERS Safety Report 7625689-5 (Version None)
Quarter: 2011Q3

REPORT INFORMATION
  Report Type: 
  Country: None (occurrence: None)
  Receive Date: 20110721
  Receipt Date: 20110714
  Transmission Date: 20111222
  Serious: Yes (Death)
  Sender: FDA-Public Use
  Company Number: JP-BAYER-200812387BYL

PATIENT
  Age: 67 Year
  Sex: Female
  Weight: 55 kg

DRUGS (7)
  1. NEXAVAR [Suspect]
     Indication: RENAL CELL CARCINOMA
     Dosage: 200 MG DAILY
     Route: 048
     Dates: start: 20080725
  2. LANSOPRAZOLE [Concomitant]
     Indication: GASTRITIS PROPHYLAXIS
     Route: 048
     Dates: start: 20080802, end: 20080920
  3. MOBIC [Concomitant]
     Route: 048
     Dates: start: 20080802, end: 20080913
  4. PREDNISOLONE [Concomitant]
     Indication: PYREXIA
     Route: 048
     Dates: start: 20080802, end: 20080913
  5. NEXAVAR [Suspect]
     Dosage: 400 MG, BID
     Route: 048
     Dates: start: 20080807, end: 20080908
  6. NEXAVAR [Suspect]
     Dosage: DAILY DOSE 400 MG
     Route: 048
     Dates: start: 20080801, end: 20080806
  7. I.V. SOLUTIONS [Concomitant]
     Dosage: UNK
     Route: 042
     Dates: start: 20080901

REACTIONS (2)
  - RENAL CELL CARCINOMA [None]
  - MELAENA [None]
